FAERS Safety Report 15831845 (Version 1)
Quarter: 2018Q4

REPORT INFORMATION
  Report Type: Spontaneous
  Country: US (occurrence: US)
  Receive Date: 20181219
  Receipt Date: 20181219
  Transmission Date: 20190205
  Serious: Yes (Hospitalization)
  Sender: FDA-Public Use
  Company Number: None

PATIENT
  Sex: Female
  Weight: 54.5 kg

DRUGS (23)
  1. KETOCONAZOLE SHAMPOO [Concomitant]
     Active Substance: KETOCONAZOLE
  2. NEOSPORIN [Concomitant]
     Active Substance: BACITRACIN ZINC\NEOMYCIN SULFATE\POLYMYXIN B SULFATE
  3. CLOBETASOL [Concomitant]
     Active Substance: CLOBETASOL
  4. BACLOFEN. [Concomitant]
     Active Substance: BACLOFEN
  5. METFORMIN [Concomitant]
     Active Substance: METFORMIN HYDROCHLORIDE
  6. CLOBETASOL [Concomitant]
     Active Substance: CLOBETASOL
  7. FERROUS SULFATE. [Concomitant]
     Active Substance: FERROUS SULFATE
  8. LIDOCAINE. [Concomitant]
     Active Substance: LIDOCAINE
  9. GLIPIZIDE. [Concomitant]
     Active Substance: GLIPIZIDE
  10. POLYETHLENE GLYCOL [Concomitant]
  11. NICOTINE POLACRILEX [Concomitant]
     Active Substance: NICOTINE
  12. FLUCINOCNIDE [Concomitant]
  13. HYDROXYZINE [Concomitant]
     Active Substance: HYDROXYZINE HYDROCHLORIDE
  14. DOCUSATE SODIUM. [Concomitant]
     Active Substance: DOCUSATE SODIUM
  15. LACTULOSE. [Concomitant]
     Active Substance: LACTULOSE
  16. DESONIDE. [Concomitant]
     Active Substance: DESONIDE
  17. ACETAMINOPHEN. [Concomitant]
     Active Substance: ACETAMINOPHEN
  18. DICLOFENAC [Concomitant]
     Active Substance: DICLOFENAC
  19. EPCLUSA [Suspect]
     Active Substance: SOFOSBUVIR\VELPATASVIR
     Indication: HEPATITIS C
     Route: 048
     Dates: start: 20170721, end: 20171017
  20. DOXEPIN [Concomitant]
     Active Substance: DOXEPIN
  21. LISINOPRIL. [Concomitant]
     Active Substance: LISINOPRIL
  22. TRIAMCINOLONE [Concomitant]
     Active Substance: TRIAMCINOLONE
  23. VANICREAM [Concomitant]
     Active Substance: TITANIUM DIOXIDE\ZINC OXIDE

REACTIONS (10)
  - Urinary tract infection [None]
  - Pyelonephritis [None]
  - Acute kidney injury [None]
  - Catheter site erythema [None]
  - Proteinuria [None]
  - Catheter site pain [None]
  - Hyperkalaemia [None]
  - Sepsis [None]
  - Metabolic acidosis [None]
  - Blood pressure inadequately controlled [None]

NARRATIVE: CASE EVENT DATE: 20170826
